FAERS Safety Report 4756894-3 (Version None)
Quarter: 2005Q3

REPORT INFORMATION
  Report Type: 
  Country: None (occurrence: None)
  Receive Date: 20050830
  Receipt Date: 20050711
  Transmission Date: 20060218
  Serious: No
  Sender: FDA-Public Use
  Company Number: US-GLAXOSMITHKLINE-A0565756A

PATIENT
  Age: 60 Year
  Sex: Male

DRUGS (10)
  1. AVODART [Suspect]
     Indication: BENIGN PROSTATIC HYPERPLASIA
     Dosage: .5MG PER DAY
     Route: 048
     Dates: start: 20050201
  2. PLAVIX [Concomitant]
  3. NADOL [Concomitant]
  4. ACIPHEX [Concomitant]
  5. FLOMAX [Concomitant]
  6. LORAZEPAM [Concomitant]
  7. ZOCOR [Concomitant]
  8. NITROGLYCERIN [Concomitant]
  9. LEXAPRO [Concomitant]
  10. NITROGLYCERIN [Concomitant]

REACTIONS (2)
  - AGEUSIA [None]
  - ANOSMIA [None]
